FAERS Safety Report 8435779-5 (Version None)
Quarter: 2012Q2

REPORT INFORMATION
  Report Type: 
  Country: None (occurrence: None)
  Receive Date: 20120614
  Receipt Date: 20120606
  Transmission Date: 20120825
  Serious: Yes (Hospitalization)
  Sender: FDA-Public Use
  Company Number: IE-ELI_LILLY_AND_COMPANY-IE201205006763

PATIENT
  Sex: Female

DRUGS (4)
  1. ENSURE PLUS [Concomitant]
  2. STALEVO 100 [Concomitant]
  3. CALCICHEW-D3 FORTE [Concomitant]
  4. FORTEO [Suspect]
     Indication: OSTEOPOROSIS
     Dosage: 20 UG, UNK
     Route: 058
     Dates: start: 20120419

REACTIONS (4)
  - NAUSEA [None]
  - VOMITING [None]
  - ANXIETY [None]
  - BLOOD PRESSURE DECREASED [None]
